FAERS Safety Report 21413708 (Version 1)
Quarter: 2022Q4

REPORT INFORMATION
  Report Type: Spontaneous
  Country: US (occurrence: US)
  Receive Date: 20221006
  Receipt Date: 20221006
  Transmission Date: 20230113
  Serious: No
  Sender: FDA-Public Use
  Company Number: US-ALLERGAN-2221262US

PATIENT
  Sex: Female

DRUGS (2)
  1. QULIPTA [Suspect]
     Active Substance: ATOGEPANT
     Indication: Product used for unknown indication
     Dosage: TAKING IT AT NIGHT BEFORE BEDTIME
  2. QULIPTA [Suspect]
     Active Substance: ATOGEPANT
     Dosage: UNK

REACTIONS (2)
  - Restless legs syndrome [Unknown]
  - Migraine [Unknown]
